FAERS Safety Report 10269732 (Version 1)
Quarter: 2014Q2

REPORT INFORMATION
  Report Type: Spontaneous
  Country: US (occurrence: None)
  Receive Date: 20140626
  Receipt Date: 20140626
  Transmission Date: 20141212
  Serious: No
  Sender: FDA-Public Use
  Company Number: None

PATIENT
  Age: 37 Year
  Sex: Male
  Weight: 63.5 kg

DRUGS (1)
  1. NEUTROGENA PORE REFINING CLEANSE [Suspect]
     Indication: ACNE
     Dosage: 2 WEEKS IN MARCH

REACTIONS (1)
  - Skin discolouration [None]
